FAERS Safety Report 5213626-2 (Version None)
Quarter: 2007Q1

REPORT INFORMATION
  Report Type: 
  Country: None (occurrence: None)
  Receive Date: 20070119
  Receipt Date: 20070109
  Transmission Date: 20070707
  Serious: Yes (Hospitalization)
  Sender: FDA-Public Use
  Company Number: JP-PFIZER INC-2006126631

PATIENT
  Sex: Female
  Weight: 52 kg

DRUGS (1)
  1. AROMASIN [Suspect]
     Indication: BREAST CANCER
     Route: 048
     Dates: start: 20060908, end: 20060926

REACTIONS (5)
  - ANOREXIA [None]
  - BACK PAIN [None]
  - LIVER DISORDER [None]
  - MALAISE [None]
  - PYREXIA [None]
